FAERS Safety Report 5508011-X (Version None)
Quarter: 2007Q4

REPORT INFORMATION
  Report Type: 
  Country: None (occurrence: None)
  Receive Date: 20071106
  Receipt Date: 20071026
  Transmission Date: 20080405
  Serious: Yes (Other)
  Sender: FDA-Public Use
  Company Number: US-TYCO HEALTHCARE/MALLINCKRODT-T200701326

PATIENT

DRUGS (1)
  1. OPTIMARK [Suspect]
     Dates: start: 20071024, end: 20071024

REACTIONS (3)
  - DYSPNOEA [None]
  - LIP SWELLING [None]
  - SWOLLEN TONGUE [None]
